FAERS Safety Report 15902509 (Version 2)
Quarter: 2019Q1

REPORT INFORMATION
  Report Type: Spontaneous
  Country: US (occurrence: US)
  Receive Date: 20190201
  Receipt Date: 20190213
  Transmission Date: 20190417
  Serious: Yes (Life-Threatening, Hospitalization, Other)
  Sender: FDA-Public Use
  Company Number: PHHY2019US021831

PATIENT
  Age: 50 Year
  Sex: Female
  Weight: 30 kg

DRUGS (2)
  1. METFORMIN [Suspect]
     Active Substance: METFORMIN HYDROCHLORIDE
     Indication: PRODUCT USED FOR UNKNOWN INDICATION
     Dosage: 850 MG, UNK (TWO 850 MG METFORMIN TABLETS SEVERAL TIMES DAILY)
     Route: 048
  2. METFORMIN [Suspect]
     Active Substance: METFORMIN HYDROCHLORIDE
     Dosage: TWO 850 MG METFORMIN TABLETS SEVERAL TIMES DAILY
     Route: 048

REACTIONS (12)
  - Metabolic acidosis [Recovering/Resolving]
  - Shock [Recovering/Resolving]
  - Hypothermia [Recovering/Resolving]
  - Toxicity to various agents [Recovering/Resolving]
  - Drug abuse [Recovering/Resolving]
  - Lactic acidosis [Recovering/Resolving]
  - Hallucination, visual [Recovering/Resolving]
  - Disorientation [Recovering/Resolving]
  - Renal tubular necrosis [Recovering/Resolving]
  - Acute kidney injury [Not Recovered/Not Resolved]
  - Hypotension [Recovering/Resolving]
  - Blood glucose decreased [Recovering/Resolving]
